FAERS Safety Report 16048758 (Version 3)
Quarter: 2019Q3

REPORT INFORMATION
  Report Type: Report from Study
  Country: DE (occurrence: DE)
  Receive Date: 20190307
  Receipt Date: 20190918
  Transmission Date: 20191004
  Serious: Yes (Other)
  Sender: FDA-Public Use
  Company Number: DE-PFIZER INC-2019095447

PATIENT
  Age: 56 Year
  Sex: Female
  Weight: 70 kg

DRUGS (7)
  1. IBUPROFEN. [Suspect]
     Active Substance: IBUPROFEN
     Dosage: 800 MG, AS NEEDED
     Route: 048
  2. LYRICA [Concomitant]
     Active Substance: PREGABALIN
     Dosage: 150 MG, 1X/DAY
     Route: 048
  3. FAMPYRA [Concomitant]
     Active Substance: DALFAMPRIDINE
     Dosage: 10 MG, 0.5 MG DAILY
     Route: 048
  4. PRAMIPEXOL [PRAMIPEXOLE DIHYDROCHLORIDE] [Concomitant]
     Dosage: TIME INTERVAL: DAY
     Route: 048
  5. CLADRIBINE. [Suspect]
     Active Substance: CLADRIBINE
     Indication: RELAPSING-REMITTING MULTIPLE SCLEROSIS
     Dosage: SECOND WEEK THERAPY
     Route: 048
     Dates: start: 20180521, end: 20180525
  6. ZOLMITRIPTAN. [Concomitant]
     Active Substance: ZOLMITRIPTAN
     Dosage: 5 MG, AS NEEDED
     Route: 048
  7. CLADRIBINE. [Suspect]
     Active Substance: CLADRIBINE
     Indication: RELAPSING MULTIPLE SCLEROSIS
     Dosage: FIRST WEEK THERAPY
     Route: 048
     Dates: start: 20180424, end: 20180428

REACTIONS (1)
  - Lymphopenia [Recovered/Resolved]

NARRATIVE: CASE EVENT DATE: 20180529
